FAERS Safety Report 10572118 (Version 2)
Quarter: 2014Q4

REPORT INFORMATION
  Report Type: Spontaneous
  Country: CL (occurrence: CL)
  Receive Date: 20141107
  Receipt Date: 20141107
  Transmission Date: 20150529
  Serious: Yes (Death, Other)
  Sender: FDA-Public Use
  Company Number: CL-TAKEDA-2014TUS010638

PATIENT
  Age: 61 Year
  Sex: Female

DRUGS (2)
  1. COLCHICINE. [Suspect]
     Active Substance: COLCHICINE
     Indication: RETROPERITONEAL FIBROSIS
     Dosage: 1.0 MG, QD
     Route: 065
  2. PREDNISONE. [Concomitant]
     Active Substance: PREDNISONE
     Indication: RETROPERITONEAL FIBROSIS
     Dosage: 30 MG, QD
     Route: 065

REACTIONS (4)
  - Product use issue [Unknown]
  - Urosepsis [Fatal]
  - Hydronephrosis [Unknown]
  - Vena cava thrombosis [Unknown]
